FAERS Safety Report 21612757 (Version 2)
Quarter: 2023Q1

REPORT INFORMATION
  Report Type: Report from Study
  Country: US (occurrence: US)
  Receive Date: 20221118
  Receipt Date: 20230224
  Transmission Date: 20230418
  Serious: No
  Sender: FDA-Public Use
  Company Number: US-ABBVIE-22K-163-4405022-00

PATIENT
  Age: 52 Year
  Sex: Male

DRUGS (4)
  1. HUMIRA [Suspect]
     Active Substance: ADALIMUMAB
     Indication: Psoriasis
     Dosage: CITRATE FREE?STRENGTH- 40 MG
     Route: 058
  2. HUMIRA [Suspect]
     Active Substance: ADALIMUMAB
     Dosage: CITRATE FREE?STRENGTH- 40 MG
     Route: 058
  3. MODERNA COVID-19 VACCINE [Concomitant]
     Active Substance: ELASOMERAN
     Indication: COVID-19 immunisation
     Dosage: TIME INTERVAL: 1 TOTAL: FREQUENCY-ONE IN ONCE
     Route: 030
  4. MODERNA COVID-19 VACCINE [Concomitant]
     Active Substance: ELASOMERAN
     Indication: COVID-19 immunisation
     Dosage: FREQUENCY-ONE IN ONCE??BOOSTER DOSE
     Route: 030

REACTIONS (9)
  - Illness [Recovering/Resolving]
  - Drug ineffective [Unknown]
  - Psoriasis [Recovering/Resolving]
  - Therapeutic response shortened [Unknown]
  - Influenza [Recovering/Resolving]
  - COVID-19 [Recovering/Resolving]
  - Respiratory syncytial virus infection [Recovering/Resolving]
  - Limb injury [Recovering/Resolving]
  - Accident [Unknown]

NARRATIVE: CASE EVENT DATE: 20221001
